FAERS Safety Report 9076428 (Version 1)
Quarter: 2013Q1

REPORT INFORMATION
  Report Type: Report from Study
  Country: US (occurrence: US)
  Receive Date: 20130129
  Receipt Date: 20130129
  Transmission Date: 20140127
  Serious: No
  Sender: FDA-Public Use
  Company Number: US-ABBOTT-12P-163-0947747-00

PATIENT
  Age: 51 Year
  Sex: Female

DRUGS (7)
  1. HUMIRA 40 MG/0.8 ML PEN [Suspect]
     Indication: RHEUMATOID ARTHRITIS
  2. METHOTREXATE [Concomitant]
     Indication: RHEUMATOID ARTHRITIS
     Dosage: 8 TABS WEEKLY
  3. PREDNISONE [Concomitant]
     Indication: RHEUMATOID ARTHRITIS
     Dosage: 2.5MG DAILY
  4. INDOCIN [Concomitant]
     Indication: RHEUMATOID ARTHRITIS
     Dosage: 2-3 TIMES DAILY
  5. HYDROCODONE [Concomitant]
     Indication: PAIN
     Dosage: 5MG UP TO 3 A DAY
  6. ELAVIL [Concomitant]
     Indication: INSOMNIA
     Dosage: 50MG 2 TABS AT NIGHT
  7. FOLIC ACID [Concomitant]
     Indication: VITAMIN SUPPLEMENTATION
     Dosage: 1MG DAILY

REACTIONS (1)
  - Rheumatoid arthritis [Recovering/Resolving]
